FAERS Safety Report 14091295 (Version 1)
Quarter: 2017Q4

REPORT INFORMATION
  Report Type: Spontaneous
  Country: US (occurrence: US)
  Receive Date: 20171016
  Receipt Date: 20171016
  Transmission Date: 20180321
  Serious: Yes (Other)
  Sender: FDA-Public Use
  Company Number: US-AMGEN-USASP2017131567

PATIENT
  Age: 74 Year
  Sex: Male
  Weight: 68.27 kg

DRUGS (1)
  1. PROCRIT [Suspect]
     Active Substance: ERYTHROPOIETIN
     Indication: ANAEMIA OF CHRONIC DISEASE
     Dosage: UNK
     Route: 058

REACTIONS (4)
  - Pruritus generalised [Recovered/Resolved]
  - Anaemia [Unknown]
  - Catheter placement [Unknown]
  - Injection site pruritus [Unknown]
